FAERS Safety Report 9901793 (Version 2)
Quarter: 2014Q1

REPORT INFORMATION
  Report Type: Spontaneous
  Country: US (occurrence: US)
  Receive Date: 20140217
  Receipt Date: 20140217
  Transmission Date: 20141002
  Serious: No
  Sender: FDA-Public Use
  Company Number: US-GILEAD-2011-0044109

PATIENT
  Sex: Female

DRUGS (1)
  1. LETAIRIS [Suspect]
     Indication: PRODUCT USED FOR UNKNOWN INDICATION
     Dosage: 5 MG, UNK
     Route: 048
     Dates: start: 20080123

REACTIONS (5)
  - Rhinorrhoea [Unknown]
  - Sneezing [Unknown]
  - Eye pruritus [Unknown]
  - Lacrimation increased [Unknown]
  - Nasal congestion [Unknown]
